FAERS Safety Report 5914071-4 (Version None)
Quarter: 2008Q4

REPORT INFORMATION
  Report Type: 
  Country: None (occurrence: None)
  Receive Date: 20081009
  Receipt Date: 20080930
  Transmission Date: 20090506
  Serious: Yes (Hospitalization)
  Sender: FDA-Public Use
  Company Number: FR-AVENTIS-200813466FR

PATIENT
  Age: 45 Year
  Sex: Female

DRUGS (1)
  1. FLAGYL [Suspect]
     Route: 067
     Dates: start: 20080826, end: 20080826

REACTIONS (6)
  - ANGIOEDEMA [None]
  - COUGH [None]
  - DYSPHAGIA [None]
  - FORMICATION [None]
  - HOT FLUSH [None]
  - PRURITUS [None]
